FAERS Safety Report 6801012-0 (Version None)
Quarter: 2010Q2

REPORT INFORMATION
  Report Type: 
  Country: None (occurrence: None)
  Receive Date: 20100624
  Receipt Date: 20100609
  Transmission Date: 20101027
  Serious: Yes (Hospitalization)
  Sender: FDA-Public Use
  Company Number: 2010000703

PATIENT
  Age: 61 Year
  Sex: Male

DRUGS (4)
  1. TARCEVA [Suspect]
     Indication: LUNG NEOPLASM MALIGNANT
     Dosage: (150 MG, QD), ORAL
     Route: 048
     Dates: start: 20091127, end: 20100222
  2. LIPITOR [Concomitant]
  3. METOPROLOL SUCCINATE [Concomitant]
  4. MORPHINE [Concomitant]

REACTIONS (4)
  - OCULAR ICTERUS [None]
  - SEBORRHOEIC DERMATITIS [None]
  - VISION BLURRED [None]
  - VOMITING [None]
